FAERS Safety Report 14978472 (Version 2)
Quarter: 2018Q2

REPORT INFORMATION
  Report Type: Spontaneous
  Country: JP (occurrence: JP)
  Receive Date: 20180606
  Receipt Date: 20180619
  Transmission Date: 20180711
  Serious: Yes (Other)
  Sender: FDA-Public Use
  Company Number: JP-GLAXOSMITHKLINE-JP2018JPN095989

PATIENT
  Age: 69 Year
  Sex: Female
  Weight: 52 kg

DRUGS (3)
  1. LAMICTAL [Suspect]
     Active Substance: LAMOTRIGINE
     Indication: BIPOLAR DISORDER
     Dosage: 25 MG, QD
     Route: 048
     Dates: start: 20180104, end: 20180124
  2. SILECE [Concomitant]
     Active Substance: FLUNITRAZEPAM
     Dosage: 1 MG, 1D
     Dates: start: 20150710
  3. LIMAS [Concomitant]
     Active Substance: LITHIUM CARBONATE
     Dosage: 600 MG, 1D
     Dates: start: 20150331

REACTIONS (4)
  - Pruritus [Unknown]
  - Erythema [Unknown]
  - Toxic skin eruption [Recovered/Resolved]
  - Rash [Recovering/Resolving]

NARRATIVE: CASE EVENT DATE: 20180114
